FAERS Safety Report 12624291 (Version 1)
Quarter: 2016Q3

REPORT INFORMATION
  Report Type: Spontaneous
  Country: US (occurrence: US)
  Receive Date: 20160805
  Receipt Date: 20160805
  Transmission Date: 20161109
  Serious: Yes (Other)
  Sender: FDA-Public Use
  Company Number: US-AMGEN-USASP2016098424

PATIENT
  Sex: Female

DRUGS (2)
  1. ZOLADEX [Concomitant]
     Active Substance: GOSERELIN ACETATE
     Dosage: UNK
     Route: 065
  2. XGEVA [Suspect]
     Active Substance: DENOSUMAB
     Indication: METASTASES TO BONE
     Dosage: UNK, Q4WK
     Route: 065
     Dates: start: 2014

REACTIONS (2)
  - Metastases to spine [Unknown]
  - Fatigue [Unknown]
